FAERS Safety Report 11465190 (Version 5)
Quarter: 2016Q1

REPORT INFORMATION
  Report Type: Report from Study
  Country: CA (occurrence: CA)
  Receive Date: 20150907
  Receipt Date: 20160118
  Transmission Date: 20160525
  Serious: Yes (Other)
  Sender: FDA-Public Use
  Company Number: CA-ROCHE-1623650

PATIENT
  Age: 83 Year
  Sex: Male

DRUGS (8)
  1. ESBRIET [Suspect]
     Active Substance: PIRFENIDONE
     Route: 048
     Dates: start: 20150728
  2. ESBRIET [Suspect]
     Active Substance: PIRFENIDONE
     Route: 048
     Dates: start: 20150804
  3. ESBRIET [Suspect]
     Active Substance: PIRFENIDONE
     Route: 048
     Dates: start: 20151020
  4. ESBRIET [Suspect]
     Active Substance: PIRFENIDONE
     Dosage: 534, 534, 534 MG
     Route: 048
     Dates: start: 20150928, end: 20151012
  5. ESBRIET [Suspect]
     Active Substance: PIRFENIDONE
     Dosage: 534, 534, 801 MG
     Route: 048
     Dates: start: 20151013, end: 20151019
  6. ESBRIET [Suspect]
     Active Substance: PIRFENIDONE
     Indication: IDIOPATHIC PULMONARY FIBROSIS
     Route: 048
     Dates: start: 20150721
  7. ESBRIET [Suspect]
     Active Substance: PIRFENIDONE
     Dosage: 534, 534, 801 MG
     Route: 048
     Dates: start: 20150922, end: 20150927
  8. QUININE SULFATE. [Concomitant]
     Active Substance: QUININE SULFATE
     Indication: MUSCLE SPASMS
     Route: 065

REACTIONS (14)
  - Feeling abnormal [Not Recovered/Not Resolved]
  - Abdominal discomfort [Recovered/Resolved]
  - Cough [Not Recovered/Not Resolved]
  - Pulmonary function test abnormal [Unknown]
  - Nausea [Not Recovered/Not Resolved]
  - Infection [Not Recovered/Not Resolved]
  - Malaise [Recovered/Resolved]
  - Weight decreased [Unknown]
  - Somnolence [Not Recovered/Not Resolved]
  - Rash [Not Recovered/Not Resolved]
  - Fatigue [Recovering/Resolving]
  - Dry mouth [Not Recovered/Not Resolved]
  - Abdominal pain upper [Not Recovered/Not Resolved]
  - Productive cough [Not Recovered/Not Resolved]

NARRATIVE: CASE EVENT DATE: 201508
